FAERS Safety Report 8777986 (Version 1)
Quarter: 2012Q4

REPORT INFORMATION
  Report Type: Report from Study
  Country: DE (occurrence: DE)
  Receive Date: 20120912
  Receipt Date: 20120912
  Transmission Date: 20130627
  Serious: Yes (Hospitalization)
  Sender: FDA-Public Use
  Company Number: PHHO2012DE013150

PATIENT
  Age: 46 Year
  Sex: Male
  Weight: 87.1 kg

DRUGS (3)
  1. TACROLIMUS SANDOZ [Suspect]
     Indication: HEART TRANSPLANT
     Dosage: 1 mg, BID
     Dates: start: 20110608
  2. EVEROLIMUS [Suspect]
     Indication: HEART TRANSPLANT
     Dosage: 10 g, BID
     Dates: start: 20111217
  3. PREDNISOLONE [Concomitant]
     Indication: HEART TRANSPLANT
     Dosage: 5 mg, UNK
     Dates: start: 20110608

REACTIONS (1)
  - Coronary artery stenosis [Recovered/Resolved]
